FAERS Safety Report 4534740-0 (Version None)
Quarter: 2004Q4

REPORT INFORMATION
  Report Type: 
  Country: None (occurrence: None)
  Receive Date: 20041222
  Receipt Date: 20040105
  Transmission Date: 20050328
  Serious: No
  Sender: FDA-Public Use
  Company Number: US-BRISTOL-MYERS SQUIBB COMPANY-12468955

PATIENT
  Age: 72 Year
  Sex: Male
  Weight: 74 kg

DRUGS (6)
  1. PRAVACHOL [Suspect]
     Indication: BLOOD CHOLESTEROL INCREASED
     Route: 048
  2. ASPIRIN [Concomitant]
     Dosage: DF= ONE ASPIRIN
  3. VITAMIN E [Concomitant]
  4. CENTRUM [Concomitant]
  5. SENOKOT [Concomitant]
  6. SAW PALMETTO [Concomitant]

REACTIONS (3)
  - CONSTIPATION [None]
  - MUSCLE TIGHTNESS [None]
  - MUSCULOSKELETAL STIFFNESS [None]
